FAERS Safety Report 12881052 (Version 1)
Quarter: 2016Q4

REPORT INFORMATION
  Report Type: Spontaneous
  Country: US (occurrence: US)
  Receive Date: 20161025
  Receipt Date: 20161025
  Transmission Date: 20170207
  Serious: Yes (Hospitalization)
  Sender: FDA-Public Use
  Company Number: None

PATIENT
  Age: 85 Year
  Sex: Male
  Weight: 83.8 kg

DRUGS (9)
  1. VITAMIN D [Concomitant]
     Active Substance: CHOLECALCIFEROL
  2. FOLVITE [Concomitant]
     Active Substance: FOLIC ACID
  3. ECOTRIN [Concomitant]
     Active Substance: ASPIRIN
  4. FLAX SEED [Concomitant]
     Active Substance: FLAX SEED
  5. ALLOPURINOL. [Concomitant]
     Active Substance: ALLOPURINOL
  6. NORVASC [Concomitant]
     Active Substance: AMLODIPINE BESYLATE
  7. VESICARE [Suspect]
     Active Substance: SOLIFENACIN SUCCINATE
     Indication: HYPERTONIC BLADDER
     Dosage: DATES OF USE CHRONIC
     Route: 048
  8. LEXAPRO [Concomitant]
     Active Substance: ESCITALOPRAM OXALATE
  9. GLUCOTROL [Concomitant]
     Active Substance: GLIPIZIDE

REACTIONS (1)
  - Fall [None]

NARRATIVE: CASE EVENT DATE: 20151027
